FAERS Safety Report 12328544 (Version 1)
Quarter: 2016Q2

REPORT INFORMATION
  Report Type: Spontaneous
  Country: US (occurrence: US)
  Receive Date: 20160503
  Receipt Date: 20160503
  Transmission Date: 20160815
  Serious: No
  Sender: FDA-Public Use
  Company Number: US-BEH-2015049071

PATIENT
  Sex: Female
  Weight: 117 kg

DRUGS (27)
  1. FIBERCON [Concomitant]
     Active Substance: CALCIUM POLYCARBOPHIL
  2. AMLODIPINE [Concomitant]
     Active Substance: AMLODIPINE BESYLATE
  3. ACETAMINOPHEN. [Concomitant]
     Active Substance: ACETAMINOPHEN
  4. METOPROLOL. [Concomitant]
     Active Substance: METOPROLOL
  5. PUB RANITIDINE [Concomitant]
  6. DIPHENHYDRAMINE. [Concomitant]
     Active Substance: DIPHENHYDRAMINE
  7. EPIPEN [Concomitant]
     Active Substance: EPINEPHRINE
  8. LORAZEPAM. [Concomitant]
     Active Substance: LORAZEPAM
  9. CYANOCOBALAMIN. [Concomitant]
     Active Substance: CYANOCOBALAMIN
  10. PROTONIX [Concomitant]
     Active Substance: PANTOPRAZOLE SODIUM
  11. AMBIEN [Concomitant]
     Active Substance: ZOLPIDEM TARTRATE
  12. POTASSIUM CL ER [Concomitant]
     Active Substance: POTASSIUM CHLORIDE
  13. NAPROXEN. [Concomitant]
     Active Substance: NAPROXEN
  14. LAMICTAL [Concomitant]
     Active Substance: LAMOTRIGINE
  15. CRESTOR [Concomitant]
     Active Substance: ROSUVASTATIN CALCIUM
  16. ABILIFY [Concomitant]
     Active Substance: ARIPIPRAZOLE
  17. NEURONTIN [Concomitant]
     Active Substance: GABAPENTIN
  18. RITALIN [Concomitant]
     Active Substance: METHYLPHENIDATE HYDROCHLORIDE
  19. CYMBALTA [Concomitant]
     Active Substance: DULOXETINE HYDROCHLORIDE
  20. SEROQUEL [Concomitant]
     Active Substance: QUETIAPINE FUMARATE
  21. HIZENTRA [Suspect]
     Active Substance: HUMAN IMMUNOGLOBULIN G
     Indication: IMMUNODEFICIENCY COMMON VARIABLE
     Route: 058
  22. LIDOCAINE/PRILOCAINE [Concomitant]
  23. OXYGEN. [Concomitant]
     Active Substance: OXYGEN
  24. ALENDRONATE SODIUM. [Concomitant]
     Active Substance: ALENDRONATE SODIUM
  25. WELLBUTRIN SR [Concomitant]
     Active Substance: BUPROPION HYDROCHLORIDE
  26. CALCIUM + VITAMIN D [Concomitant]
     Active Substance: CALCIUM\VITAMIN D
  27. MS CONTIN [Concomitant]
     Active Substance: MORPHINE SULFATE

REACTIONS (1)
  - Bloody discharge [Unknown]
